FAERS Safety Report 11823635 (Version 1)
Quarter: 2015Q4

REPORT INFORMATION
  Report Type: Spontaneous
  Country: CA (occurrence: CA)
  Receive Date: 20151210
  Receipt Date: 20151210
  Transmission Date: 20160305
  Serious: Yes (Hospitalization)
  Sender: FDA-Public Use
  Company Number: CA-PFIZER INC-2015418544

PATIENT

DRUGS (1)
  1. TEMSIROLIMUS [Suspect]
     Active Substance: TEMSIROLIMUS

REACTIONS (1)
  - Cardiac failure [Unknown]
